FAERS Safety Report 9205910 (Version 2)
Quarter: 2013Q4

REPORT INFORMATION
  Report Type: Spontaneous
  Country: US (occurrence: US)
  Receive Date: 20130403
  Receipt Date: 20131105
  Transmission Date: 20140711
  Serious: Yes (Hospitalization, Other)
  Sender: FDA-Public Use
  Company Number: US-BAYER-2013-039546

PATIENT
  Age: 29 Year
  Sex: Female

DRUGS (6)
  1. YAZ [Suspect]
     Indication: ACNE
  2. GIANVI [Suspect]
     Indication: ACNE
  3. BENICAR [Concomitant]
     Route: 048
  4. CLARITIN [Concomitant]
     Route: 048
  5. MTV [Concomitant]
     Route: 048
  6. PREDNISONE [Concomitant]
     Dosage: 10MG TAKE 4 TABLETS ONCE A DAY FOR 3 DAYS
     Route: 048

REACTIONS (5)
  - Cholecystectomy [None]
  - Cholecystitis acute [None]
  - Injury [None]
  - Pain [None]
  - Pain [None]
